FAERS Safety Report 6945431-0 (Version None)
Quarter: 2010Q3

REPORT INFORMATION
  Report Type: 
  Country: None (occurrence: None)
  Receive Date: 20100827
  Receipt Date: 20100823
  Transmission Date: 20110219
  Serious: Yes (Death, Other)
  Sender: FDA-Public Use
  Company Number: US-ROCHE-721956

PATIENT
  Sex: Male

DRUGS (6)
  1. MYCOPHENOLATE MOFETIL [Suspect]
     Route: 065
     Dates: start: 20091217, end: 20100304
  2. BELATACEPT [Suspect]
     Dosage: 10 MG/KG ON DAYS 1 AND 5 AND AT WEEK 2, 4, 8 AND 12
     Route: 042
     Dates: start: 20070104
  3. BELATACEPT [Suspect]
     Route: 042
  4. BELATACEPT [Suspect]
     Route: 042
     Dates: start: 20100110, end: 20100617
  5. PREDNISONE [Suspect]
     Route: 048
     Dates: start: 20090130, end: 20100802
  6. SIROLIMUS [Concomitant]
     Dates: start: 20100129, end: 20100802

REACTIONS (2)
  - DEATH [None]
  - METASTATIC SQUAMOUS CELL CARCINOMA [None]
